FAERS Safety Report 17683706 (Version 1)
Quarter: 2020Q2

REPORT INFORMATION
  Report Type: Report from Study
  Country: US (occurrence: US)
  Receive Date: 20200420
  Receipt Date: 20200420
  Transmission Date: 20200714
  Serious: Yes (Death, Life-Threatening, Hospitalization)
  Sender: FDA-Public Use
  Company Number: US-ROCHE-2582785

PATIENT
  Age: 67 Year
  Sex: Male
  Weight: 90.5 kg

DRUGS (4)
  1. AZITHROMYCIN ANHYDROUS. [Concomitant]
     Active Substance: AZITHROMYCIN ANHYDROUS
     Indication: CORONAVIRUS INFECTION
     Route: 065
     Dates: start: 20200320
  2. ACTEMRA [Suspect]
     Active Substance: TOCILIZUMAB
     Indication: CORONAVIRUS INFECTION
     Dosage: NO
     Route: 042
     Dates: start: 20200326, end: 20200326
  3. HYDROXYCHLOROQUINE [Concomitant]
     Active Substance: HYDROXYCHLOROQUINE
     Indication: CORONAVIRUS INFECTION
     Route: 065
     Dates: start: 20200320
  4. METHYLPREDISOLONE [Concomitant]
     Active Substance: METHYLPREDNISOLONE
     Indication: CORONAVIRUS INFECTION
     Route: 065
     Dates: start: 20200327, end: 20200402

REACTIONS (3)
  - Off label use [Unknown]
  - Oxygen saturation decreased [Unknown]
  - Death [Fatal]

NARRATIVE: CASE EVENT DATE: 20200326
